FAERS Safety Report 6331137-8 (Version None)
Quarter: 2009Q3

REPORT INFORMATION
  Report Type: 
  Country: None (occurrence: None)
  Receive Date: 20090827
  Receipt Date: 20090819
  Transmission Date: 20100115
  Serious: No
  Sender: FDA-Public Use
  Company Number: BR-ROCHE-651852

PATIENT
  Sex: Female
  Weight: 78 kg

DRUGS (1)
  1. ROACUTAN [Suspect]
     Indication: ACNE
     Route: 048
     Dates: start: 20090804, end: 20090815

REACTIONS (2)
  - NO ADVERSE EVENT [None]
  - PREGNANCY [None]
